FAERS Safety Report 12396567 (Version 1)
Quarter: 2016Q2

REPORT INFORMATION
  Report Type: Spontaneous
  Country: US (occurrence: None)
  Receive Date: 20160523
  Receipt Date: 20160523
  Transmission Date: 20160815
  Serious: Yes (Life-Threatening, Hospitalization)
  Sender: FDA-Public Use
  Company Number: None

PATIENT
  Age: 57 Year
  Sex: Female
  Weight: 88.45 kg

DRUGS (1)
  1. ARMODAFINIL 150MG [Suspect]
     Active Substance: ARMODAFINIL
     Indication: FATIGUE
     Route: 048

REACTIONS (3)
  - Coronary artery disease [None]
  - Left ventricular dysfunction [None]
  - Sudden cardiac death [None]

NARRATIVE: CASE EVENT DATE: 20160429
